FAERS Safety Report 5311896-3 (Version None)
Quarter: 2007Q2

REPORT INFORMATION
  Report Type: 
  Country: None (occurrence: None)
  Receive Date: 20070426
  Receipt Date: 20070426
  Transmission Date: 20071010
  Serious: No
  Sender: FDA-Public Use
  Company Number: None

PATIENT
  Sex: Female
  Weight: 86.1834 kg

DRUGS (1)
  1. ADVAIR DISKUS 500/50 [Suspect]
     Dosage: ONE TWICE DAILY PO
     Route: 048

REACTIONS (5)
  - ACNE [None]
  - PAIN [None]
  - PRURITUS [None]
  - TENDERNESS [None]
  - URTICARIA [None]
